FAERS Safety Report 9149128 (Version 1)
Quarter: 2013Q1

REPORT INFORMATION
  Report Type: Spontaneous
  Country: US (occurrence: US)
  Receive Date: 20130308
  Receipt Date: 20130308
  Transmission Date: 20140127
  Serious: No
  Sender: FDA-Public Use
  Company Number: US-ENDO PHARMACEUTICALS INC.-OPCR20121690

PATIENT
  Age: 37 None
  Sex: Female
  Weight: 113.5 kg

DRUGS (5)
  1. OPANA ER [Suspect]
     Indication: ABDOMINAL PAIN
     Route: 048
     Dates: start: 2012
  2. OPANA ER [Suspect]
     Indication: ARTHRALGIA
     Dosage: 40 MG
     Route: 048
     Dates: start: 2012, end: 20120722
  3. OPANA ER [Concomitant]
     Indication: ABDOMINAL PAIN
     Route: 048
     Dates: start: 2006, end: 2012
  4. AMBIEN [Concomitant]
     Indication: INSOMNIA
     Dosage: UNKNOWN
     Route: 048
  5. LYRICA [Concomitant]
     Indication: PRODUCT USED FOR UNKNOWN INDICATION
     Dosage: UNKNOWN
     Route: 048

REACTIONS (12)
  - Weight increased [Unknown]
  - Amblyopia [Unknown]
  - Diplopia [Unknown]
  - Hypoaesthesia [Unknown]
  - Rash generalised [Unknown]
  - Medication residue present [Unknown]
  - Dyspepsia [Unknown]
  - Nervousness [Unknown]
  - Chest discomfort [Unknown]
  - Insomnia [Unknown]
  - Withdrawal syndrome [Unknown]
  - Drug ineffective [Unknown]
